FAERS Safety Report 19259590 (Version 1)
Quarter: 2021Q2

REPORT INFORMATION
  Report Type: Spontaneous
  Country: BO (occurrence: BO)
  Receive Date: 20210514
  Receipt Date: 20210514
  Transmission Date: 20210717
  Serious: Yes (Other)
  Sender: FDA-Public Use
  Company Number: BO-POPULATION COUNCIL-2020TPC000011

PATIENT
  Age: 28 Year
  Sex: Female

DRUGS (2)
  1. DRUGS FOR TREATMENT OF TUBERCULOSIS [Suspect]
     Active Substance: UNSPECIFIED INGREDIENT
     Indication: TUBERCULOSIS
     Dates: end: 201907
  2. JADELLE [Suspect]
     Active Substance: LEVONORGESTREL
     Indication: CONTRACEPTION
     Route: 059
     Dates: start: 20190618, end: 20200109

REACTIONS (6)
  - Nausea [Unknown]
  - Asthenia [Unknown]
  - Drug ineffective [Unknown]
  - Amenorrhoea [Unknown]
  - Pregnancy with implant contraceptive [Unknown]
  - Vomiting [Unknown]

NARRATIVE: CASE EVENT DATE: 20200109
